FAERS Safety Report 20393228 (Version 1)
Quarter: 2022Q1

REPORT INFORMATION
  Report Type: Report from Study
  Country: IT (occurrence: IT)
  Receive Date: 20220128
  Receipt Date: 20220128
  Transmission Date: 20220423
  Serious: Yes (Hospitalization, Other)
  Sender: FDA-Public Use
  Company Number: None

PATIENT
  Age: 83 Year
  Sex: Female

DRUGS (3)
  1. APIXABAN [Suspect]
     Active Substance: APIXABAN
     Indication: Cerebrovascular accident prophylaxis
     Dosage: UNK
     Route: 065
     Dates: start: 20210101, end: 20211223
  2. IBUPROFEN [Suspect]
     Active Substance: IBUPROFEN
     Indication: Spinal pain
     Route: 065
  3. NEBIVOLOL HYDROCHLORIDE [Concomitant]
     Active Substance: NEBIVOLOL HYDROCHLORIDE
     Indication: Product used for unknown indication
     Route: 065

REACTIONS (2)
  - Anaemia [Recovering/Resolving]
  - Gastritis erosive [Recovering/Resolving]

NARRATIVE: CASE EVENT DATE: 20211223
